FAERS Safety Report 5569898-8 (Version None)
Quarter: 2007Q4

REPORT INFORMATION
  Report Type: 
  Country: None (occurrence: None)
  Receive Date: 20071220
  Receipt Date: 20071210
  Transmission Date: 20080405
  Serious: Yes (Death, Hospitalization, Other)
  Sender: FDA-Public Use
  Company Number: BR-ABBOTT-07P-020-0424025-00

PATIENT
  Sex: Female
  Weight: 100 kg

DRUGS (18)
  1. HUMIRA [Suspect]
     Indication: RHEUMATOID ARTHRITIS
     Route: 058
     Dates: start: 20070301, end: 20071004
  2. MELOXICAM [Concomitant]
     Indication: ANTIINFLAMMATORY THERAPY
     Route: 048
  3. PREDNISONE [Concomitant]
     Indication: DRUG USE FOR UNKNOWN INDICATION
     Route: 048
  4. KETOROLAC TROMETHAMINE [Concomitant]
     Indication: DRUG USE FOR UNKNOWN INDICATION
     Route: 048
  5. DILTIAZEM [Concomitant]
     Indication: DRUG USE FOR UNKNOWN INDICATION
     Route: 048
  6. FUROSEMIDE [Concomitant]
     Indication: DRUG USE FOR UNKNOWN INDICATION
     Route: 048
  7. GLYBURIDE [Concomitant]
     Indication: DIABETES MELLITUS
     Route: 048
  8. AMIODARONE [Concomitant]
     Indication: CARDIAC DISORDER
     Route: 048
  9. OMEPRAZOLE [Concomitant]
     Indication: DRUG USE FOR UNKNOWN INDICATION
     Route: 048
  10. TIOTROPIUM BROMIDE [Concomitant]
     Indication: DRUG USE FOR UNKNOWN INDICATION
     Route: 055
  11. ANTIINFLAMMATORY/ANTIRHEUMATIC PRODUCTS [Concomitant]
     Indication: RHEUMATOID ARTHRITIS
     Route: 048
  12. UNKNOWN [Concomitant]
     Indication: HYPERTENSION
     Route: 048
  13. UNKNOWN [Concomitant]
     Indication: DIABETES MELLITUS
     Route: 048
  14. UNKNOWN [Concomitant]
     Indication: CARDIAC FAILURE
     Route: 048
  15. UNKNOWN [Concomitant]
     Indication: RENAL FAILURE
     Route: 048
  16. UNKNOWN [Concomitant]
     Indication: PULMONARY HYPERTENSION
     Route: 048
  17. UNKNOWN [Concomitant]
     Indication: EMPHYSEMA
     Route: 048
  18. UNKNOWN [Concomitant]
     Indication: GOITRE
     Route: 048

REACTIONS (7)
  - APATHY [None]
  - BLOOD UREA INCREASED [None]
  - CONFUSIONAL STATE [None]
  - PNEUMONIA [None]
  - SEPSIS [None]
  - SEPTIC SHOCK [None]
  - URINARY TRACT INFECTION [None]
